FAERS Safety Report 6911448-5 (Version None)
Quarter: 2010Q3

REPORT INFORMATION
  Report Type: 
  Country: None (occurrence: None)
  Receive Date: 20100806
  Receipt Date: 20100727
  Transmission Date: 20110219
  Serious: Yes (Hospitalization, Disabling)
  Sender: FDA-Public Use
  Company Number: DE-ABBOTT-10P-062-0660247-00

PATIENT
  Sex: Male

DRUGS (8)
  1. VALPROATE SODIUM [Suspect]
     Indication: INFANTILE SPASMS
     Dates: end: 20100101
  2. SABRIL [Suspect]
     Indication: INFANTILE SPASMS
     Route: 048
     Dates: start: 20100605
  3. SABRIL [Suspect]
     Route: 048
     Dates: start: 20100101, end: 20100101
  4. LASIX [Suspect]
     Indication: BRONCHOPULMONARY DYSPLASIA
     Route: 048
  5. LAMOTRIGINE [Suspect]
     Indication: INFANTILE SPASMS
     Route: 048
     Dates: end: 20100101
  6. LAMOTRIGINE [Suspect]
     Route: 048
     Dates: start: 20100101
  7. OSPOLOT [Suspect]
     Indication: INFANTILE SPASMS
     Route: 048
  8. FERRO SANOL [Suspect]
     Indication: PRODUCT USED FOR UNKNOWN INDICATION

REACTIONS (6)
  - BLOOD CREATINE PHOSPHOKINASE INCREASED [None]
  - BLOOD LACTATE DEHYDROGENASE INCREASED [None]
  - DRUG INTERACTION [None]
  - HYPERTHERMIA MALIGNANT [None]
  - RESTLESSNESS [None]
  - RHABDOMYOLYSIS [None]
